FAERS Safety Report 4759517-2 (Version None)
Quarter: 2005Q3

REPORT INFORMATION
  Report Type: 
  Country: None (occurrence: None)
  Receive Date: 20050831
  Receipt Date: 20050823
  Transmission Date: 20060218
  Serious: Yes (Death, Other)
  Sender: FDA-Public Use
  Company Number: 163-20785-05060176

PATIENT
  Age: 79 Year
  Sex: Male

DRUGS (2)
  1. THALOMID [Suspect]
     Indication: MULTIPLE MYELOMA
     Dosage: 100 MG, DAILY,ORAL
     Route: 048
     Dates: start: 20000701, end: 20050501
  2. NEURONTIN [Concomitant]

REACTIONS (4)
  - AORTIC VALVE STENOSIS [None]
  - ARRHYTHMIA [None]
  - CARDIOMYOPATHY [None]
  - SIMPLE PARTIAL SEIZURES [None]
